FAERS Safety Report 24096673 (Version 4)
Quarter: 2024Q3

REPORT INFORMATION
  Report Type: Spontaneous
  Country: US (occurrence: US)
  Receive Date: 20240716
  Receipt Date: 20240815
  Transmission Date: 20241017
  Serious: No
  Sender: ROCHE
  Company Number: US-ROCHE-10000024826

PATIENT
  Age: 41 Year
  Sex: Female
  Weight: 67.13 kg

DRUGS (10)
  1. ENSPRYNG [Suspect]
     Active Substance: SATRALIZUMAB-MWGE
     Indication: Neuromyelitis optica spectrum disorder
     Route: 058
  2. ENSPRYNG [Suspect]
     Active Substance: SATRALIZUMAB-MWGE
  3. ENSPRYNG [Suspect]
     Active Substance: SATRALIZUMAB-MWGE
  4. RITUXAN [Suspect]
     Active Substance: RITUXIMAB
     Indication: Neuromyelitis optica spectrum disorder
     Route: 058
  5. OCTINOXATE AND OCTOCRYLENE [Concomitant]
     Active Substance: ENSULIZOLE\OCTINOXATE\OCTOCRYLENE\TITANIUM DIOXIDE
     Route: 065
  6. PREGABALIN [Concomitant]
     Active Substance: PREGABALIN
     Indication: Neuralgia
     Dosage: BID IN THE AM AND PM
     Route: 065
  7. CALCIUM [Concomitant]
     Active Substance: CALCIUM
     Route: 065
  8. ADVIL [Concomitant]
     Active Substance: IBUPROFEN\IBUPROFEN SODIUM
     Indication: Pain
     Dosage: AT NIGHT
     Route: 065
     Dates: start: 202406
  9. BENADRYL [Concomitant]
     Active Substance: DIPHENHYDRAMINE HYDROCHLORIDE
     Dosage: AT NIGHT
     Route: 065
  10. VITAMIN D [Concomitant]
     Active Substance: VITAMIN D NOS
     Indication: Vitamin D deficiency
     Dosage: ON SATURDAY OR SUNDAY
     Route: 065
     Dates: start: 20240429

REACTIONS (11)
  - Depression [Unknown]
  - Weight increased [Unknown]
  - Weight decreased [Unknown]
  - Pain [Unknown]
  - Insomnia [Unknown]
  - Vitamin D deficiency [Unknown]
  - COVID-19 [Unknown]
  - Device issue [Unknown]
  - Feeling abnormal [Unknown]
  - Wrong technique in product usage process [Unknown]
  - Off label use [Unknown]

NARRATIVE: CASE EVENT DATE: 20230801
